FAERS Safety Report 5315016-0 (Version None)
Quarter: 2007Q2

REPORT INFORMATION
  Report Type: 
  Country: None (occurrence: None)
  Receive Date: 20070502
  Receipt Date: 20070423
  Transmission Date: 20071010
  Serious: Yes (Disabling)
  Sender: FDA-Public Use
  Company Number: PHBS2006VE15331

PATIENT
  Age: 54 Year
  Sex: Female

DRUGS (1)
  1. GLEEVEC [Suspect]
     Indication: CHRONIC MYELOID LEUKAEMIA
     Dosage: 400 MG/D
     Route: 048
     Dates: start: 20060811

REACTIONS (5)
  - DRUG INTOLERANCE [None]
  - FATIGUE [None]
  - GAIT DISTURBANCE [None]
  - PALPITATIONS [None]
  - TREMOR [None]
